FAERS Safety Report 5271925-2 (Version None)
Quarter: 2007Q1

REPORT INFORMATION
  Report Type: 
  Country: None (occurrence: None)
  Receive Date: 20061214
  Receipt Date: 20061004
  Transmission Date: 20070707
  Serious: Yes (Hospitalization, Other)
  Sender: FDA-Public Use
  Company Number: 2006126264

PATIENT
  Age: 35 Year
  Sex: Female
  Weight: 78.0187 kg

DRUGS (1)
  1. BEXTRA [Suspect]
     Indication: BACK PAIN
     Dosage: (10 MG, 1 D)
     Dates: start: 20021201

REACTIONS (1)
  - MYOCARDIAL INFARCTION [None]
